FAERS Safety Report 4433165-6 (Version None)
Quarter: 2004Q3

REPORT INFORMATION
  Report Type: 
  Country: None (occurrence: None)
  Receive Date: 20040823
  Receipt Date: 20040809
  Transmission Date: 20050211
  Serious: Yes (Other)
  Sender: FDA-Public Use
  Company Number: 2004046006

PATIENT
  Age: 45 Year
  Sex: Female

DRUGS (15)
  1. ATARAX [Suspect]
     Indication: MIGRAINE
  2. ATARAX [Suspect]
     Indication: TRIGEMINAL NERVE DISORDER
  3. KETOPROFEN [Suspect]
     Indication: MIGRAINE
  4. KETOPROFEN [Suspect]
     Indication: TRIGEMINAL NERVE DISORDER
  5. LORAZEPAM [Suspect]
     Indication: MIGRAINE
  6. LORAZEPAM [Suspect]
     Indication: TRIGEMINAL NERVE DISORDER
  7. CYCLOBENZAPRINE HYDROCHLORIDE [Suspect]
     Indication: MIGRAINE
  8. CYCLOBENZAPRINE HYDROCHLORIDE [Suspect]
     Indication: TRIGEMINAL NERVE DISORDER
  9. VERAPAMIL HCL [Suspect]
     Indication: MIGRAINE
  10. VERAPAMIL HCL [Suspect]
     Indication: TRIGEMINAL NERVE DISORDER
  11. MIDRID (DICHLORALPHENAZONE, ISOMETHEPTENE, PARACETAMOL) [Suspect]
     Indication: MIGRAINE
  12. MIDRID (DICHLORALPHENAZONE, ISOMETHEPTENE, PARACETAMOL) [Suspect]
     Indication: TRIGEMINAL NERVE DISORDER
  13. AXOTAL (OLD FORM) (BULTALBITAL, CAFFEINE, PARACETAMOL) [Concomitant]
  14. ALL OTHER THERAPEUTIC PRODUCTS (ALL OTHER THERAPEUTIC PRODUCTS) [Suspect]
  15. NORTRIPTYLINE HYDROCHLORIDE [Concomitant]

REACTIONS (2)
  - CARDIAC DISORDER [None]
  - HYPERTENSION [None]
